FAERS Safety Report 23708173 (Version 1)
Quarter: 2024Q2

REPORT INFORMATION
  Report Type: Spontaneous
  Country: IT (occurrence: IT)
  Receive Date: 20240404
  Receipt Date: 20240404
  Transmission Date: 20240716
  Serious: Yes (Hospitalization)
  Sender: FDA-Public Use
  Company Number: None

PATIENT
  Age: 39 Year
  Sex: Female

DRUGS (6)
  1. PACLITAXEL [Suspect]
     Active Substance: PACLITAXEL
     Indication: Breast cancer stage IV
     Route: 042
  2. ACETAMINOPHEN [Concomitant]
     Active Substance: ACETAMINOPHEN
     Indication: Product used for unknown indication
     Dosage: PARACETAMOL
     Route: 048
  3. MS CONTIN [Concomitant]
     Active Substance: MORPHINE SULFATE
     Indication: Product used for unknown indication
     Route: 048
  4. RABEPRAZOL0 [Concomitant]
     Indication: Product used for unknown indication
     Route: 048
  5. MAGALDRATO [Concomitant]
     Indication: Product used for unknown indication
     Dosage: DOSAGE: 80 MG/ML
     Route: 048
  6. DECAPEPTYL [Concomitant]
     Indication: Product used for unknown indication
     Route: 030

REACTIONS (6)
  - Flushing [Recovered/Resolved]
  - Face oedema [Recovered/Resolved]
  - Wheezing [Recovered/Resolved]
  - Hypoxia [Recovered/Resolved]
  - Throat tightness [Recovered/Resolved]
  - Dyspnoea [Recovered/Resolved]

NARRATIVE: CASE EVENT DATE: 20240228
